FAERS Safety Report 9204461 (Version 1)
Quarter: 2013Q1

REPORT INFORMATION
  Report Type: Spontaneous
  Country: US (occurrence: None)
  Receive Date: 20120709
  Receipt Date: 20120709
  Transmission Date: 20140127
  Serious: No
  Sender: FDA-Public Use
  Company Number: 2012HGS-003432

PATIENT
  Age: 43 Year
  Sex: Female

DRUGS (4)
  1. BENLYSTA [Suspect]
     Indication: SYSTEMIC LUPUS ERYTHEMATOSUS
     Dosage: 1 IN 28 D
     Route: 041
     Dates: start: 20120301
  2. PREDNISONE (PREDNISONE) [Concomitant]
  3. PLAQUENIL (HYDROXYCHLOROQUINE PHOSPHATE)TE) (HYDROXYCHLOROQUINE [Concomitant]
  4. CYMBALTA (DULOXETINE HYDROCHLORIDE) (DULOXETINE HYDROCHLORIDE) [Concomitant]

REACTIONS (5)
  - Arthralgia [None]
  - Hypoaesthesia [None]
  - Somnolence [None]
  - Appetite disorder [None]
  - Weight increased [None]
